FAERS Safety Report 6828544-3 (Version None)
Quarter: 2010Q3

REPORT INFORMATION
  Report Type: 
  Country: None (occurrence: None)
  Receive Date: 20100709
  Receipt Date: 20070213
  Transmission Date: 20110219
  Serious: Yes (Other)
  Sender: FDA-Public Use
  Company Number: US-PFIZER INC-2007012106

PATIENT
  Age: 46 Year
  Sex: Male
  Weight: 90.7 kg

DRUGS (3)
  1. CHANTIX [Suspect]
     Dosage: DAILY
     Dates: start: 20061201, end: 20070101
  2. NEURONTIN [Concomitant]
  3. HYDROCODONE BITARTRATE [Concomitant]

REACTIONS (4)
  - AMNESIA [None]
  - ANGER [None]
  - FEELING ABNORMAL [None]
  - MOOD SWINGS [None]
